FAERS Safety Report 5352431-3 (Version None)
Quarter: 2007Q2

REPORT INFORMATION
  Report Type: 
  Country: None (occurrence: None)
  Receive Date: 20070611
  Receipt Date: 20070605
  Transmission Date: 20071010
  Serious: Yes (Death)
  Sender: FDA-Public Use
  Company Number: A0654291A

PATIENT
  Sex: Male

DRUGS (2)
  1. PAXIL [Suspect]
     Indication: DEPRESSION
     Dosage: 20MG PER DAY
     Route: 065
     Dates: end: 20041001
  2. METFORMIN HCL [Concomitant]

REACTIONS (7)
  - CARDIAC DISORDER [None]
  - DEATH [None]
  - DEATH NEONATAL [None]
  - HEART DISEASE CONGENITAL [None]
  - MISCARRIAGE OF PARTNER [None]
  - PREGNANCY OF PARTNER [None]
  - TRANSMISSION OF DRUG VIA SEMEN [None]
